FAERS Safety Report 5924696-8 (Version None)
Quarter: 2008Q4

REPORT INFORMATION
  Report Type: 
  Country: None (occurrence: None)
  Receive Date: 20081016
  Receipt Date: 20081006
  Transmission Date: 20090506
  Serious: Yes (Hospitalization)
  Sender: FDA-Public Use
  Company Number: 1-16725701/MED-08188

PATIENT
  Age: 11 Year
  Sex: Female

DRUGS (2)
  1. CLONIDINE HCL [Suspect]
     Indication: TOURETTE'S DISORDER
     Dosage: 25 MCG, FOUR TIMES DAILY, ORAL
     Route: 048
  2. RISPERIDONE [Suspect]
     Indication: TOURETTE'S DISORDER
     Dosage: 1 MG, FOUR TIMES DAILY, ORAL
     Route: 048

REACTIONS (1)
  - TRANSIENT ISCHAEMIC ATTACK [None]
